FAERS Safety Report 4502413-6 (Version None)
Quarter: 2004Q4

REPORT INFORMATION
  Report Type: 
  Country: None (occurrence: None)
  Receive Date: 20041110
  Receipt Date: 20041102
  Transmission Date: 20050328
  Serious: Yes (Death, Hospitalization)
  Sender: FDA-Public Use
  Company Number: 2004EU001953

PATIENT
  Age: 41 Year
  Sex: Male

DRUGS (3)
  1. PROGRAF [Suspect]
     Indication: BONE MARROW TRANSPLANT
  2. MYCOPHENOLATE MOFETIL(MYCOPHENOLATE MOFETIL) [Concomitant]
  3. SIROLIMUS (SIROLIMUS) [Concomitant]

REACTIONS (2)
  - HEPATITIS B [None]
  - LEUKAEMIA RECURRENT [None]
